FAERS Safety Report 5692485-8 (Version None)
Quarter: 2008Q1

REPORT INFORMATION
  Report Type: 
  Country: None (occurrence: None)
  Receive Date: 20080331
  Receipt Date: 20080318
  Transmission Date: 20080703
  Serious: Yes (Disabling, Other)
  Sender: FDA-Public Use
  Company Number: 2008S1000091

PATIENT
  Age: 66 Year
  Sex: Male
  Weight: 86.9999 kg

DRUGS (7)
  1. ACITRETIN [Suspect]
     Indication: PSORIASIS
     Dosage: 10 MG;QD;PO; 30 MG; QD; PO; QD;PO
     Route: 048
     Dates: start: 19990125, end: 19990201
  2. ACITRETIN [Suspect]
     Indication: PSORIASIS
     Dosage: 10 MG;QD;PO; 30 MG; QD; PO; QD;PO
     Route: 048
     Dates: end: 20010424
  3. ACITRETIN [Suspect]
     Indication: PSORIASIS
     Dosage: 10 MG;QD;PO; 30 MG; QD; PO; QD;PO
     Route: 048
     Dates: start: 19990201
  4. ASPIRIN [Concomitant]
  5. METOBETA [Concomitant]
  6. ENABETA [Concomitant]
  7. BETA BLOCKING AGENTS [Concomitant]

REACTIONS (9)
  - ALOPECIA [None]
  - HAIR COLOUR CHANGES [None]
  - MADAROSIS [None]
  - MENTAL DISORDER [None]
  - MYOCARDIAL INFARCTION [None]
  - NAIL BED INFECTION [None]
  - PAIN OF SKIN [None]
  - PURULENCE [None]
  - SKIN ATROPHY [None]
